FAERS Safety Report 7801029-3 (Version None)
Quarter: 2011Q4

REPORT INFORMATION
  Report Type: 
  Country: None (occurrence: None)
  Receive Date: 20111007
  Receipt Date: 20110927
  Transmission Date: 20120403
  Serious: No
  Sender: FDA-Public Use
  Company Number: US-BIOGENIDEC-2010BI044468

PATIENT
  Sex: Female

DRUGS (3)
  1. METHOTREXATE [Concomitant]
     Indication: MULTIPLE SCLEROSIS
  2. TYSABRI [Suspect]
     Indication: MULTIPLE SCLEROSIS
     Route: 042
     Dates: start: 20101112
  3. TYSABRI [Suspect]
     Route: 042
     Dates: start: 20070515, end: 20100302

REACTIONS (3)
  - GAIT DISTURBANCE [None]
  - PERONEAL NERVE PALSY [None]
  - GENERAL PHYSICAL HEALTH DETERIORATION [None]
